FAERS Safety Report 12136510 (Version 1)
Quarter: 2016Q1

REPORT INFORMATION
  Report Type: Spontaneous
  Country: US (occurrence: None)
  Receive Date: 20160301
  Receipt Date: 20160301
  Transmission Date: 20160526
  Serious: Yes (Other)
  Sender: FDA-Public Use
  Company Number: None

PATIENT
  Age: 50 Year
  Sex: Female
  Weight: 85.73 kg

DRUGS (2)
  1. GENERIC ADERALL 20X2 VETERANS AFFAIRS [Suspect]
     Active Substance: AMPHETAMINE ASPARTATE\AMPHETAMINE SULFATE\DEXTROAMPHETAMINE SACCHARATE\DEXTROAMPHETAMINE SULFATE
     Indication: MENTAL DISORDER
     Dosage: 20MGX2 TWICE DAILY TAKEN BY MOUTH
     Dates: start: 20150201, end: 20160229
  2. GENERIC ADERALL [Concomitant]

REACTIONS (1)
  - Therapy change [None]

NARRATIVE: CASE EVENT DATE: 20160229
